FAERS Safety Report 11044109 (Version 1)
Quarter: 2015Q2

REPORT INFORMATION
  Report Type: Spontaneous
  Country: US (occurrence: None)
  Receive Date: 20150415
  Receipt Date: 20150415
  Transmission Date: 20150821
  Serious: Yes (Hospitalization)
  Sender: FDA-Public Use
  Company Number: FK201501692

PATIENT
  Age: 62 Year
  Sex: Female

DRUGS (3)
  1. IRINOTECAN (IRINOTECAN) [Concomitant]
     Active Substance: IRINOTECAN
  2. CISPLATIN (MANUFACTURER UNKNOWN) (CISPLATIN) (CISPLATIN) [Suspect]
     Active Substance: CISPLATIN
     Indication: SMALL CELL LUNG CANCER
     Dosage: CYCLICAL
  3. ETOPOSIDE (MANUFACTURER UNKNOWN) (ETOPOSIDE) (ETOPOSIDE) [Suspect]
     Active Substance: ETOPOSIDE
     Indication: SMALL CELL LUNG CANCER
     Dosage: CYCLICAL

REACTIONS (6)
  - Neutropenia [None]
  - Trichophytic granuloma [None]
  - Dysphagia [None]
  - Metastasis [None]
  - Leukopenia [None]
  - Neoplasm recurrence [None]
